FAERS Safety Report 6782623-8 (Version None)
Quarter: 2010Q2

REPORT INFORMATION
  Report Type: 
  Country: None (occurrence: None)
  Receive Date: 20100621
  Receipt Date: 20100610
  Transmission Date: 20101027
  Serious: Yes (Hospitalization, Disabling, Other)
  Sender: FDA-Public Use
  Company Number: DE-BRISTOL-MYERS SQUIBB COMPANY-15154008

PATIENT
  Age: 56 Year
  Sex: Female

DRUGS (1)
  1. LYSODREN [Suspect]
     Indication: ADRENAL CARCINOMA
     Dates: start: 20090801, end: 20100412

REACTIONS (6)
  - ASTHENIA [None]
  - DECREASED APPETITE [None]
  - DEPRESSION [None]
  - DRUG LEVEL ABOVE THERAPEUTIC [None]
  - DYSPHAGIA [None]
  - WEIGHT DECREASED [None]
